FAERS Safety Report 9728651 (Version 2)
Quarter: 2014Q1

REPORT INFORMATION
  Report Type: Spontaneous
  Country: US (occurrence: US)
  Receive Date: 20131204
  Receipt Date: 20140129
  Transmission Date: 20141002
  Serious: No
  Sender: FDA-Public Use
  Company Number: US-009507513-1312USA001324

PATIENT
  Age: 8 Month
  Sex: Female
  Weight: 7.26 kg

DRUGS (2)
  1. CLARITIN ORAL SOLUTION [Suspect]
     Indication: PRODUCT USED FOR UNKNOWN INDICATION
     Dosage: 2.5 MG, ONCE
     Route: 048
     Dates: start: 201311, end: 201311
  2. PRILOSEC [Concomitant]
     Indication: GASTROOESOPHAGEAL REFLUX DISEASE
     Dosage: UNK, UNKNOWN

REACTIONS (4)
  - Diarrhoea [Recovered/Resolved]
  - Overdose [Unknown]
  - Drug administered to patient of inappropriate age [Unknown]
  - Off label use [Unknown]
